FAERS Safety Report 8219500-1 (Version None)
Quarter: 2012Q1

REPORT INFORMATION
  Report Type: 
  Country: None (occurrence: None)
  Receive Date: 20120307
  Receipt Date: 20110322
  Transmission Date: 20120608
  Serious: Yes (Other)
  Sender: FDA-Public Use
  Company Number: PHHY2011US16250

PATIENT
  Age: 57 Year
  Sex: Male
  Weight: 68 kg

DRUGS (1)
  1. AFINITOR [Suspect]
     Indication: RENAL CANCER
     Dosage: 10 MG, ORAL
     Route: 048
     Dates: start: 20101019, end: 20110218

REACTIONS (3)
  - NEOPLASM MALIGNANT [None]
  - DRUG INEFFECTIVE [None]
  - NEOPLASM PROGRESSION [None]
